FAERS Safety Report 6579280-2 (Version None)
Quarter: 2010Q1

REPORT INFORMATION
  Report Type: 
  Country: None (occurrence: None)
  Receive Date: 20100212
  Receipt Date: 20100203
  Transmission Date: 20100710
  Serious: Yes (Other)
  Sender: FDA-Public Use
  Company Number: FR-ABBOTT-10P-056-0625640-00

PATIENT
  Age: 17 Year
  Sex: Female

DRUGS (1)
  1. ERYTHROCINE [Suspect]
     Indication: VAGINAL INFECTION
     Route: 048

REACTIONS (6)
  - JAUNDICE [None]
  - NAUSEA [None]
  - PALPATORY FINDING ABNORMAL [None]
  - PYREXIA [None]
  - TRANSAMINASES INCREASED [None]
  - URTICARIA [None]
